FAERS Safety Report 25978646 (Version 2)
Quarter: 2025Q4

REPORT INFORMATION
  Report Type: Report from Study
  Country: EU (occurrence: EU)
  Receive Date: 20251030
  Receipt Date: 20251106
  Transmission Date: 20260118
  Serious: Yes (Hospitalization, Other)
  Sender: DAIICHI
  Company Number: EU-ASTRAZENECA-202510GLO021994DE

PATIENT
  Sex: Female
  Weight: 58 kg

DRUGS (8)
  1. ENHERTU [Suspect]
     Active Substance: FAM-TRASTUZUMAB DERUXTECAN-NXKI
     Indication: Breast cancer
     Dosage: UNK
     Route: 042
  2. APREPITANT [Concomitant]
     Active Substance: APREPITANT
     Indication: Nausea
     Dosage: 125 MILLIGRAM (CYCLE ADMINISTRATION)
     Route: 048
     Dates: start: 20241107
  3. APREPITANT [Concomitant]
     Active Substance: APREPITANT
     Dosage: 80 MILLIGRAM (CYCLE ADMINISTRATION)
     Route: 048
     Dates: start: 20241108
  4. ONDANSETRON [Concomitant]
     Active Substance: ONDANSETRON
     Indication: Nausea
     Dosage: 8 MILLIGRAM (CYCLE  ADMINISTRATION)
     Route: 042
     Dates: start: 20241107
  5. ONDANSETRON [Concomitant]
     Active Substance: ONDANSETRON
     Dosage: 8 MILLIGRAM (CYCLE ADMINISTRATION)
     Route: 048
     Dates: start: 20241108
  6. DEXAMETHASONE [Concomitant]
     Active Substance: DEXAMETHASONE
     Indication: Vomiting
     Dosage: 8 MILLIGRAM (CYCLE ADMINISTRATION)
     Route: 042
     Dates: start: 20241107
  7. DEXAMETHASONE [Concomitant]
     Active Substance: DEXAMETHASONE
     Dosage: 8 MILLIGRAM (CYCLE ADMINISTRATION)
     Route: 048
     Dates: start: 20241108
  8. IBANDRONATE SODIUM [Concomitant]
     Active Substance: IBANDRONATE SODIUM
     Indication: Product used for unknown indication
     Dosage: 6 MILLIGRAM (CYCLE ADMINISTRATION)
     Route: 042
     Dates: start: 20240430

REACTIONS (1)
  - Bile duct stenosis [Recovered/Resolved]

NARRATIVE: CASE EVENT DATE: 20251008
